FAERS Safety Report 7496563-2 (Version None)
Quarter: 2011Q2

REPORT INFORMATION
  Report Type: 
  Country: None (occurrence: None)
  Receive Date: 20110523
  Receipt Date: 20110509
  Transmission Date: 20111010
  Serious: Yes (Death, Other)
  Sender: FDA-Public Use
  Company Number: US-ACTELION-A-US2011-48525

PATIENT

DRUGS (1)
  1. VENTAVIS [Suspect]
     Indication: PULMONARY ARTERIAL HYPERTENSION
     Dosage: 2.5 UG, 6 X DAY
     Route: 055
     Dates: start: 20110321

REACTIONS (2)
  - GENERAL PHYSICAL HEALTH DETERIORATION [None]
  - DEATH [None]
